FAERS Safety Report 4613849-7 (Version None)
Quarter: 2005Q1

REPORT INFORMATION
  Report Type: 
  Country: None (occurrence: None)
  Receive Date: 20050321
  Receipt Date: 20041201
  Transmission Date: 20050727
  Serious: Yes (Death, Life-Threatening, Hospitalization)
  Sender: FDA-Public Use
  Company Number: US-BRISTOL-MYERS SQUIBB COMPANY-12782058

PATIENT
  Age: 79 Year
  Sex: Male
  Weight: 79 kg

DRUGS (2)
  1. ERBITUX [Suspect]
     Indication: COLON CANCER METASTATIC
     Route: 042
     Dates: start: 20040505, end: 20040505
  2. BENADRYL [Concomitant]
     Indication: PREMEDICATION
     Route: 042
     Dates: start: 20040505, end: 20040505

REACTIONS (10)
  - ANAEMIA [None]
  - ASTHENIA [None]
  - CHILLS [None]
  - COLON CANCER METASTATIC [None]
  - COMA [None]
  - DYSPNOEA [None]
  - HYPERHIDROSIS [None]
  - HYPOTENSION [None]
  - HYPOXIA [None]
  - TACHYCARDIA [None]
